FAERS Safety Report 7772356-3 (Version None)
Quarter: 2011Q3

REPORT INFORMATION
  Report Type: 
  Country: None (occurrence: None)
  Receive Date: 20110922
  Receipt Date: 20110912
  Transmission Date: 20111222
  Serious: Yes (Hospitalization)
  Sender: FDA-Public Use
  Company Number: JP-SANOFI-AVENTIS-2011SA056894

PATIENT
  Age: 62 Year
  Sex: Male

DRUGS (11)
  1. FAMOTIDINE [Concomitant]
     Route: 048
     Dates: start: 20110522
  2. CLOPIDOGREL BISULFATE [Suspect]
     Dosage: LOADING TREATMENT
     Route: 065
     Dates: start: 20100522, end: 20100522
  3. MAGNESIUM OXIDE [Concomitant]
     Indication: CONSTIPATION PROPHYLAXIS
     Route: 048
     Dates: start: 20100527
  4. AMIODARONE HCL [Concomitant]
     Indication: VENTRICULAR TACHYCARDIA
     Route: 048
     Dates: start: 20100524
  5. CLOPIDOGREL BISULFATE [Suspect]
     Dosage: MAINTANANCE TREATMENT
     Route: 065
     Dates: start: 20100523
  6. HEPARIN [Concomitant]
     Dosage: DOSE:3000 UNIT(S)
     Route: 042
     Dates: start: 20100522, end: 20100522
  7. ISOSORBIDE DINITRATE [Concomitant]
     Dosage: ROUTE: OTHER (PATCH)
     Route: 050
     Dates: start: 20100526
  8. ASPIRIN [Concomitant]
     Route: 048
     Dates: start: 20100522
  9. CARVEDILOL [Concomitant]
     Route: 048
     Dates: start: 20100527
  10. HEPARIN [Concomitant]
     Dosage: DOSE:20000 UNIT(S)
     Route: 050
     Dates: start: 20100523, end: 20100531
  11. ATORVASTATIN [Concomitant]
     Route: 048
     Dates: start: 20100522

REACTIONS (1)
  - ANGIOPATHY [None]
